FAERS Safety Report 5493287-8 (Version None)
Quarter: 2007Q4

REPORT INFORMATION
  Report Type: 
  Country: None (occurrence: None)
  Receive Date: 20071022
  Receipt Date: 20071022
  Transmission Date: 20080405
  Serious: Yes (Hospitalization)
  Sender: FDA-Public Use
  Company Number: None

PATIENT
  Sex: Female
  Weight: 53.5244 kg

DRUGS (2)
  1. ACTOS [Suspect]
     Indication: DIABETES MELLITUS
     Dosage: 15 MG -3 TABS ONCE DAILY IRAK
     Route: 048
     Dates: start: 20070609, end: 20070927
  2. LANTUS [Concomitant]

REACTIONS (3)
  - FALL [None]
  - HAEMATOMA [None]
  - SYNCOPE [None]
